FAERS Safety Report 14316437 (Version 1)
Quarter: 2017Q4

REPORT INFORMATION
  Report Type: Spontaneous
  Country: ES (occurrence: ES)
  Receive Date: 20171222
  Receipt Date: 20171222
  Transmission Date: 20180321
  Serious: Yes (Hospitalization)
  Sender: FDA-Public Use
  Company Number: ES-SUN PHARMACEUTICAL INDUSTRIES LTD-2017RR-157726

PATIENT
  Age: 90 Year
  Sex: Male

DRUGS (1)
  1. CIPROFLOXACIN. [Suspect]
     Active Substance: CIPROFLOXACIN
     Indication: URINARY TRACT INFECTION
     Route: 048
     Dates: start: 20151229, end: 20161105

REACTIONS (2)
  - Diarrhoea [Recovered/Resolved]
  - Dysbacteriosis [Recovered/Resolved]

NARRATIVE: CASE EVENT DATE: 20151229
